FAERS Safety Report 9309844 (Version 1)
Quarter: 2013Q2

REPORT INFORMATION
  Report Type: Spontaneous
  Country: US (occurrence: US)
  Receive Date: 20130525
  Receipt Date: 20130525
  Transmission Date: 20140414
  Serious: No
  Sender: FDA-Public Use
  Company Number: US-BRISTOL-MYERS SQUIBB COMPANY-18748368

PATIENT
  Age: 67 Year
  Sex: Female

DRUGS (9)
  1. BYDUREON [Suspect]
     Indication: TYPE 2 DIABETES MELLITUS
     Dosage: TOTAL DOSE 4 MG
     Route: 058
     Dates: start: 20130117, end: 20130129
  2. METFORMIN [Concomitant]
     Indication: TYPE 2 DIABETES MELLITUS
     Route: 048
  3. GLIPIZIDE [Concomitant]
     Indication: TYPE 2 DIABETES MELLITUS
     Route: 048
  4. LANTUS [Concomitant]
     Indication: TYPE 2 DIABETES MELLITUS
     Route: 058
  5. NIASPAN [Concomitant]
  6. METOPROLOL [Concomitant]
  7. SPIRONOLACTONE [Concomitant]
     Indication: HYPERTENSION
  8. ZOCOR [Concomitant]
  9. SERTRALINE [Concomitant]

REACTIONS (2)
  - Injection site nodule [Not Recovered/Not Resolved]
  - Off label use [Unknown]
